FAERS Safety Report 23530375 (Version 2)
Quarter: 2024Q1

REPORT INFORMATION
  Report Type: Spontaneous
  Country: ES (occurrence: ES)
  Receive Date: 20240216
  Receipt Date: 20240222
  Transmission Date: 20240410
  Serious: Yes (Hospitalization)
  Sender: FDA-Public Use
  Company Number: ES-002147023-NVSC2024ES026340

PATIENT
  Age: 49 Year
  Sex: Female

DRUGS (8)
  1. XOLAIR [Suspect]
     Active Substance: OMALIZUMAB
     Indication: Indolent systemic mastocytosis
     Dosage: UNK
     Route: 065
     Dates: start: 202401
  2. XOLAIR [Suspect]
     Active Substance: OMALIZUMAB
     Indication: Hypotension
     Route: 065
     Dates: start: 20231129
  3. XOLAIR [Suspect]
     Active Substance: OMALIZUMAB
     Indication: Dizziness
  4. LORAZEPAM [Concomitant]
     Active Substance: LORAZEPAM
     Indication: Product used for unknown indication
     Dosage: 1 MG (2 TABLETS - 24 HOURS)
  5. LACTULOSA LAINCO [Concomitant]
     Indication: Product used for unknown indication
     Dosage: UNK (3.33 G / 5  ML)
  6. CARBIDOPA\LEVODOPA [Concomitant]
     Active Substance: CARBIDOPA\LEVODOPA
     Indication: Product used for unknown indication
     Dosage: UNK (25/100 MG) (2 TABLETS - 8 HOURS)
  7. CLOBEX [Concomitant]
     Active Substance: CLOBETASOL PROPIONATE
     Indication: Product used for unknown indication
     Dosage: UNK (500 MCG/G) (1 APPLICATION -24 HOURS)
  8. LINACLOTIDE [Concomitant]
     Active Substance: LINACLOTIDE
     Indication: Product used for unknown indication
     Dosage: UNK (HARD CAPSULE) (290 MCG) (1 CAPSULE - 24 HOURS)

REACTIONS (2)
  - Aneurysm ruptured [Unknown]
  - Off label use [Unknown]
